FAERS Safety Report 17800158 (Version 3)
Quarter: 2020Q2

REPORT INFORMATION
  Report Type: Spontaneous
  Country: TW (occurrence: TW)
  Receive Date: 20200519
  Receipt Date: 20200529
  Transmission Date: 20200714
  Serious: Yes (Hospitalization)
  Sender: FDA-Public Use
  Company Number: TW-BIOGEN-2020BI00873553

PATIENT
  Sex: Male
  Weight: 69 kg

DRUGS (5)
  1. TECFIDERA [Suspect]
     Active Substance: DIMETHYL FUMARATE
     Dosage: IN THE MORNING
     Route: 048
     Dates: start: 20191107, end: 20191113
  2. TECFIDERA [Suspect]
     Active Substance: DIMETHYL FUMARATE
     Dosage: 120MG BID*7 DAY
     Route: 048
     Dates: start: 20191031, end: 20191106
  3. TECFIDERA [Suspect]
     Active Substance: DIMETHYL FUMARATE
     Dosage: 240MG BID (THE 4TH WEEK)
     Route: 048
     Dates: start: 20191114
  4. TECFIDERA [Suspect]
     Active Substance: DIMETHYL FUMARATE
     Indication: MULTIPLE SCLEROSIS
     Dosage: 120MG QD *7 DAY (THE 1ST WEEK)
     Route: 048
     Dates: start: 20191024, end: 20191030
  5. TECFIDERA [Suspect]
     Active Substance: DIMETHYL FUMARATE
     Dosage: AT NIGHT
     Route: 048
     Dates: start: 20191107, end: 20191113

REACTIONS (4)
  - Underdose [Unknown]
  - Depression [Unknown]
  - Multiple sclerosis [Unknown]
  - Multiple sclerosis relapse [Recovered/Resolved]

NARRATIVE: CASE EVENT DATE: 20200429
